FAERS Safety Report 12448747 (Version 3)
Quarter: 2016Q3

REPORT INFORMATION
  Report Type: Spontaneous
  Country: CZ (occurrence: CZ)
  Receive Date: 20160608
  Receipt Date: 20160726
  Transmission Date: 20161109
  Serious: Yes (Other)
  Sender: FDA-Public Use
  Company Number: CZ-JNJFOC-20160604750

PATIENT
  Age: 68 Year
  Sex: Female

DRUGS (5)
  1. MICARDIS PLUS [Concomitant]
     Active Substance: HYDROCHLOROTHIAZIDE\TELMISARTAN
     Route: 048
  2. USTEKINUMAB [Suspect]
     Active Substance: USTEKINUMAB
     Indication: PSORIASIS
     Route: 058
     Dates: start: 201411
  3. USTEKINUMAB [Suspect]
     Active Substance: USTEKINUMAB
     Indication: PSORIASIS
     Route: 058
     Dates: start: 20151204, end: 201603
  4. USTEKINUMAB [Suspect]
     Active Substance: USTEKINUMAB
     Indication: PSORIASIS
     Route: 058
     Dates: start: 20160408
  5. EUTHYROX [Concomitant]
     Active Substance: LEVOTHYROXINE SODIUM
     Route: 048

REACTIONS (14)
  - Basal cell carcinoma [Unknown]
  - Pleural effusion [Recovering/Resolving]
  - Osteoporosis [Unknown]
  - Dyspepsia [Unknown]
  - Cardiac perforation [Unknown]
  - Pericardial haemorrhage [Unknown]
  - Anxiety [Unknown]
  - Sinus node dysfunction [Unknown]
  - Hydrothorax [Unknown]
  - Chest pain [Unknown]
  - Cardiac tamponade [Unknown]
  - Rash generalised [Unknown]
  - Somnolence [Unknown]
  - Atelectasis [Recovering/Resolving]

NARRATIVE: CASE EVENT DATE: 2015
